FAERS Safety Report 5089117-9 (Version None)
Quarter: 2006Q3

REPORT INFORMATION
  Report Type: 
  Country: None (occurrence: None)
  Receive Date: 20060825
  Receipt Date: 20060810
  Transmission Date: 20061208
  Serious: Yes (Other)
  Sender: FDA-Public Use
  Company Number: ES-BOEHRINGER INGELHEIM PHARMACEUTICALS, INC.-2006-DE-04460GL

PATIENT
  Age: 44 Year
  Sex: Male

DRUGS (3)
  1. TELMISARTAN [Suspect]
     Indication: ESSENTIAL HYPERTENSION
     Route: 048
     Dates: start: 20020601
  2. FLUVASTATIN SODIUM CAPSULE [Suspect]
     Indication: LIPID METABOLISM DISORDER
     Route: 048
     Dates: start: 20001001
  3. REPORTED IN NARRATIVE [Concomitant]

REACTIONS (1)
  - ERECTILE DYSFUNCTION [None]
